FAERS Safety Report 8934119 (Version 1)
Quarter: 2012Q4

REPORT INFORMATION
  Report Type: 
  Country: GB (occurrence: GB)
  Receive Date: 20121129
  Receipt Date: 20121129
  Transmission Date: 20130627
  Serious: Yes (Disabling)
  Sender: FDA-Public Use
  Company Number: GB-WATSON-2012-20458

PATIENT
  Age: 68 Year
  Sex: Female

DRUGS (4)
  1. SIMVASTATIN (UNKNOWN) [Suspect]
     Indication: BLOOD CHOLESTEROL INCREASED
     Dosage: 40 mg, unknown. at night
     Route: 048
     Dates: start: 20120701, end: 20121001
  2. BENDROFLUMETHIAZIDE [Concomitant]
     Indication: HYPERTENSION
     Dosage: 2.5 mg, daily
     Route: 048
  3. LERCANIDIPINE [Concomitant]
     Indication: HYPERTENSION
     Dosage: 20 mg, daily
     Route: 048
  4. CANDESARTAN [Concomitant]
     Indication: HYPERTENSION
     Dosage: 8 mg, daily
     Route: 048

REACTIONS (6)
  - Muscle spasms [Not Recovered/Not Resolved]
  - Fatigue [Not Recovered/Not Resolved]
  - Sleep disorder [Not Recovered/Not Resolved]
  - Arthralgia [Not Recovered/Not Resolved]
  - Myalgia [Not Recovered/Not Resolved]
  - Weight increased [Not Recovered/Not Resolved]
